FAERS Safety Report 4723843-3 (Version None)
Quarter: 2005Q3

REPORT INFORMATION
  Report Type: 
  Country: None (occurrence: None)
  Receive Date: 20050721
  Receipt Date: 20050706
  Transmission Date: 20060218
  Serious: Yes (Hospitalization)
  Sender: FDA-Public Use
  Company Number: COT_0070_2005

PATIENT
  Age: 58 Year
  Sex: Female

DRUGS (5)
  1. ILOPROST [Suspect]
     Indication: PULMONARY HYPERTENSION
     Dosage: 2.5 MG ONCE IH
     Route: 055
     Dates: start: 20050501, end: 20050501
  2. ILOPROST [Suspect]
     Indication: PULMONARY HYPERTENSION
     Dosage: 5 MCG Q2HR IH
     Route: 055
     Dates: start: 20050426
  3. ADVAIR DISKUS 100/50 [Concomitant]
  4. DIGOXIN [Concomitant]
  5. ATIVAN [Concomitant]

REACTIONS (3)
  - DIARRHOEA [None]
  - NAUSEA [None]
  - VOMITING [None]
